FAERS Safety Report 10583472 (Version 1)
Quarter: 2014Q4

REPORT INFORMATION
  Report Type: Spontaneous
  Country: US (occurrence: None)
  Receive Date: 20141112
  Receipt Date: 20141112
  Transmission Date: 20150529
  Serious: Yes (Death)
  Sender: FDA-Public Use
  Company Number: INT_00508_2014

PATIENT
  Age: 38 Year
  Sex: Female

DRUGS (3)
  1. CISPLATIN (HQ SPECIALTY) [Suspect]
     Active Substance: CISPLATIN
     Indication: OESOPHAGEAL ADENOCARCINOMA
     Dosage: (TWO CYCLES)
  2. RADIOTHERAPY [Concomitant]
     Active Substance: RADIATION THERAPY
  3. FLUOROURACIL. [Suspect]
     Active Substance: FLUOROURACIL
     Indication: OESOPHAGEAL ADENOCARCINOMA
     Dosage: (TWO CYCLES)

REACTIONS (10)
  - Confusional state [None]
  - Generalised tonic-clonic seizure [None]
  - Gastrointestinal toxicity [None]
  - Vomiting [None]
  - Pyrexia [None]
  - Brain oedema [None]
  - Nausea [None]
  - Haematemesis [None]
  - Fracture [None]
  - Fat embolism [None]
